FAERS Safety Report 6754091-3 (Version None)
Quarter: 2010Q2

REPORT INFORMATION
  Report Type: 
  Country: None (occurrence: None)
  Receive Date: 20100603
  Receipt Date: 20100524
  Transmission Date: 20101027
  Serious: Yes (Hospitalization)
  Sender: FDA-Public Use
  Company Number: US-ASTRAZENECA-2010SE23842

PATIENT
  Sex: Female

DRUGS (19)
  1. TOPROL-XL [Suspect]
     Route: 048
  2. PROPAFENONE HCL [Suspect]
  3. APIXABAN [Suspect]
     Indication: THROMBOSIS PROPHYLAXIS
     Dosage: 10 (UNIT NOT PROVIDED) DAILY
     Route: 048
     Dates: start: 20090217, end: 20090326
  4. WARFARIN SODIUM [Suspect]
     Indication: THROMBOSIS PROPHYLAXIS
     Dosage: 35 (UNIT NOT PROVIDED) DAILY
     Route: 048
     Dates: start: 20090217, end: 20090326
  5. PLACEBO [Suspect]
     Indication: THROMBOSIS PROPHYLAXIS
     Route: 048
     Dates: start: 20090217, end: 20090326
  6. PROMETHAZINE [Concomitant]
     Dates: start: 20080829
  7. PANTOPRAZOLE [Concomitant]
     Dates: start: 20080829
  8. DIGOXIN [Concomitant]
     Dates: start: 20080507
  9. ACETAMINOPHEN [Concomitant]
     Dates: start: 20080527
  10. ALPRAZOLAM [Concomitant]
     Dates: start: 20080527
  11. ASPIRIN [Concomitant]
     Dates: start: 20080527, end: 20100201
  12. SYNTHROID [Concomitant]
     Dates: start: 20080527
  13. DOXEPIN HCL [Concomitant]
     Dates: start: 20080527, end: 20100201
  14. BUPROPION HCL [Concomitant]
     Dates: start: 20080527
  15. FIBERCHOICE [Concomitant]
     Dates: start: 20080527
  16. FLEX-A-MIN [Concomitant]
     Dates: start: 20080527
  17. MIRALAX [Concomitant]
     Dates: start: 20080527
  18. MULTI-VITAMIN [Concomitant]
     Dates: start: 20080527
  19. BENEFIBER [Concomitant]
     Dates: start: 20080527

REACTIONS (3)
  - DYSARTHRIA [None]
  - LIMB DISCOMFORT [None]
  - ORTHOSTATIC HYPOTENSION [None]
